FAERS Safety Report 20345046 (Version 1)
Quarter: 2022Q1

REPORT INFORMATION
  Report Type: Spontaneous
  Country: US (occurrence: None)
  Receive Date: 20220116
  Receipt Date: 20220116
  Transmission Date: 20220424
  Serious: Yes (Other)
  Sender: FDA-Public Use
  Company Number: None

PATIENT
  Age: 46 Year
  Sex: Female
  Weight: 63 kg

DRUGS (13)
  1. PAXLOVID [Suspect]
     Active Substance: NIRMATRELVIR\RITONAVIR
     Indication: COVID-19
     Dosage: OTHER QUANTITY : 30 TABLET(S);?FREQUENCY : EVERY 12 HOURS;?
     Route: 048
     Dates: start: 20220106, end: 20220111
  2. NOVALOG/INSULIN PUMP [Concomitant]
  3. TRINTELLIX [Concomitant]
     Active Substance: VORTIOXETINE HYDROBROMIDE
  4. TRULICITY [Concomitant]
     Active Substance: DULAGLUTIDE
  5. TRAZODONE [Concomitant]
     Active Substance: TRAZODONE HYDROCHLORIDE
  6. BUSPIRONE [Concomitant]
     Active Substance: BUSPIRONE HYDROCHLORIDE
  7. BUPROPION [Concomitant]
     Active Substance: BUPROPION
  8. ROSUVASTATIN [Concomitant]
     Active Substance: ROSUVASTATIN
  9. XYZAL [Concomitant]
     Active Substance: LEVOCETIRIZINE DIHYDROCHLORIDE
  10. MIRENA [Concomitant]
     Active Substance: LEVONORGESTREL
  11. XANAX [Concomitant]
     Active Substance: ALPRAZOLAM
  12. IBUPROFEN [Concomitant]
     Active Substance: IBUPROFEN
  13. VITAMIN D [Concomitant]
     Active Substance: VITAMIN D NOS

REACTIONS (4)
  - Dyskinesia [None]
  - Dyskinesia [None]
  - Discomfort [None]
  - Headache [None]

NARRATIVE: CASE EVENT DATE: 20220112
